FAERS Safety Report 5053211-9 (Version None)
Quarter: 2006Q3

REPORT INFORMATION
  Report Type: 
  Country: None (occurrence: None)
  Receive Date: 20060712
  Receipt Date: 20060628
  Transmission Date: 20061208
  Serious: Yes (Hospitalization, Other)
  Sender: FDA-Public Use
  Company Number: 2005134639

PATIENT
  Sex: Male
  Weight: 86.1834 kg

DRUGS (2)
  1. CELEBREX [Suspect]
     Indication: ILL-DEFINED DISORDER
  2. VIOXX [Suspect]
     Indication: ILL-DEFINED DISORDER

REACTIONS (5)
  - ANKLE FRACTURE [None]
  - BRAIN STEM THROMBOSIS [None]
  - CARDIOVASCULAR DISORDER [None]
  - FALL [None]
  - THROMBOSIS [None]
